FAERS Safety Report 7204894-6 (Version None)
Quarter: 2010Q4

REPORT INFORMATION
  Report Type: 
  Country: None (occurrence: None)
  Receive Date: 20101230
  Receipt Date: 20101222
  Transmission Date: 20110411
  Serious: Yes (Death)
  Sender: FDA-Public Use
  Company Number: US-JNJFOC-20100906887

PATIENT
  Sex: Female
  Weight: 65.32 kg

DRUGS (8)
  1. REMICADE [Suspect]
     Indication: RHEUMATOID ARTHRITIS
     Route: 042
  2. REMICADE [Suspect]
     Route: 042
  3. REMICADE [Suspect]
     Route: 042
  4. CELEBREX [Suspect]
     Indication: PRODUCT USED FOR UNKNOWN INDICATION
  5. FOSAMAX [Concomitant]
  6. CALCIUM WITH VITAMIN D [Concomitant]
  7. TENORMIN [Concomitant]
  8. VITAMIN B-12 [Concomitant]

REACTIONS (3)
  - ADVERSE DRUG REACTION [None]
  - MYOCARDIAL INFARCTION [None]
  - RASH PRURITIC [None]
